FAERS Safety Report 4752291-5 (Version None)
Quarter: 2005Q3

REPORT INFORMATION
  Report Type: 
  Country: None (occurrence: None)
  Receive Date: 20050825
  Receipt Date: 20050629
  Transmission Date: 20060218
  Serious: Yes (Life-Threatening, Hospitalization, Disabling)
  Sender: FDA-Public Use
  Company Number: US-BRISTOL-MYERS SQUIBB COMPANY-13020730

PATIENT
  Age: 75 Year
  Sex: Male

DRUGS (8)
  1. CETUXIMAB [Suspect]
     Indication: LUNG CANCER METASTATIC
     Route: 042
     Dates: start: 20050620, end: 20050620
  2. CARBOPLATIN [Suspect]
     Indication: LUNG CANCER METASTATIC
     Route: 042
     Dates: start: 20050620, end: 20050620
  3. PACLITAXEL [Suspect]
     Indication: LUNG CANCER METASTATIC
     Route: 042
     Dates: start: 20050620, end: 20050620
  4. APAP TAB [Concomitant]
     Indication: PAIN
     Dosage: EVERY 3 HOURS AS NEEDED.
     Dates: start: 20050101
  5. ATENOLOL [Concomitant]
     Indication: HYPERTENSION
     Route: 048
     Dates: start: 20050101
  6. COUMADIN [Concomitant]
     Indication: PROPHYLAXIS
     Dates: start: 20050601
  7. LEVAQUIN [Concomitant]
     Indication: ANTIBIOTIC PROPHYLAXIS
     Route: 048
     Dates: start: 20050620
  8. PROPOXYPHENE HCL [Concomitant]
     Indication: PAIN
     Dosage: EVERY 3 HOURS AS NEEDED.
     Dates: start: 20050501

REACTIONS (6)
  - BRONCHIAL OBSTRUCTION [None]
  - FATIGUE [None]
  - HAEMOPTYSIS [None]
  - NON-SMALL CELL LUNG CANCER [None]
  - PNEUMONITIS [None]
  - SUPERIOR VENA CAVAL OCCLUSION [None]
